FAERS Safety Report 6257867-4 (Version None)
Quarter: 2009Q3

REPORT INFORMATION
  Report Type: 
  Country: None (occurrence: None)
  Receive Date: 20090707
  Receipt Date: 20070618
  Transmission Date: 20100115
  Serious: Yes (Other)
  Sender: FDA-Public Use
  Company Number: US-ASTRAZENECA-2006UW07827

PATIENT
  Age: 15763 Day
  Sex: Male
  Weight: 100.2 kg

DRUGS (10)
  1. SEROQUEL [Suspect]
     Indication: SCHIZOPHRENIA
     Route: 048
     Dates: start: 20000101
  2. SEROQUEL [Suspect]
     Indication: BIPOLAR DISORDER
     Route: 048
     Dates: start: 20000101
  3. SEROQUEL [Suspect]
     Dosage: 40-400 MG
     Route: 048
     Dates: start: 20010101
  4. SEROQUEL [Suspect]
     Dosage: 40-400 MG
     Route: 048
     Dates: start: 20010101
  5. RISPERDAL [Concomitant]
     Dosage: 1-4 MG
     Route: 048
     Dates: start: 20010227
  6. ZANTAC [Concomitant]
     Indication: GASTROOESOPHAGEAL REFLUX DISEASE
     Dosage: 75-450 MG
     Route: 048
     Dates: start: 19990410
  7. TRAZODONE HCL [Concomitant]
     Indication: DEPRESSION
     Dosage: 50-200 MG
     Route: 048
     Dates: start: 20010227
  8. EFFEXOR XR [Concomitant]
     Dosage: 75-300 MG
     Route: 048
     Dates: start: 20031226
  9. AMBIEN [Concomitant]
     Indication: SLEEP DISORDER
     Dosage: 5-10 MG
     Route: 048
     Dates: start: 20050825
  10. ASPIRIN [Concomitant]
     Route: 048
     Dates: start: 19990410

REACTIONS (5)
  - DIABETES MELLITUS INADEQUATE CONTROL [None]
  - DIABETIC EYE DISEASE [None]
  - DIABETIC NEUROPATHY [None]
  - HYPOGLYCAEMIA [None]
  - TYPE 2 DIABETES MELLITUS [None]
